FAERS Safety Report 7656207-3 (Version None)
Quarter: 2011Q3

REPORT INFORMATION
  Report Type: 
  Country: None (occurrence: None)
  Receive Date: 20110801
  Receipt Date: 20110718
  Transmission Date: 20111222
  Serious: Yes (Other)
  Sender: FDA-Public Use
  Company Number: 2011MA009424

PATIENT
  Sex: Female

DRUGS (4)
  1. PROPRANOLOL [Concomitant]
  2. ARIPIPRAZOLE [Concomitant]
  3. RISPERIDONE [Suspect]
     Indication: PRODUCT USED FOR UNKNOWN INDICATION
     Dosage: 6 MG;QD;PO
     Route: 048
  4. VENLAFAXINE [Concomitant]

REACTIONS (2)
  - GALACTORRHOEA [None]
  - BLOOD PROLACTIN INCREASED [None]
